FAERS Safety Report 8064456-8 (Version None)
Quarter: 2012Q1

REPORT INFORMATION
  Report Type: 
  Country: None (occurrence: None)
  Receive Date: 20120123
  Receipt Date: 20120116
  Transmission Date: 20120608
  Serious: Yes (Other)
  Sender: FDA-Public Use
  Company Number: PHEH2011US02645

PATIENT
  Sex: Female

DRUGS (4)
  1. EXTAVIA [Suspect]
     Indication: MULTIPLE SCLEROSIS
     Dosage: 0.125 MG, QOD
     Route: 058
     Dates: start: 20110812
  2. EXTAVIA [Suspect]
     Dosage: 0.25 MG, QOD
     Route: 058
  3. IBUPROFEN [Concomitant]
  4. MOTRIN [Concomitant]
     Dosage: UNK UKN, UNK

REACTIONS (11)
  - BALANCE DISORDER [None]
  - MULTIPLE SCLEROSIS RELAPSE [None]
  - AKINESIA [None]
  - INJECTION SITE PRURITUS [None]
  - INJECTION SITE ERYTHEMA [None]
  - FALL [None]
  - ABASIA [None]
  - HYPOAESTHESIA [None]
  - INJECTION SITE PAIN [None]
  - VISUAL IMPAIRMENT [None]
  - FEAR [None]
